FAERS Safety Report 10945138 (Version 1)
Quarter: 2015Q1

REPORT INFORMATION
  Report Type: Spontaneous
  Country: US (occurrence: None)
  Receive Date: 20150212
  Receipt Date: 20150212
  Transmission Date: 20150721
  Serious: Yes (Hospitalization)
  Sender: FDA-Public Use
  Company Number: TPA2011A00908

PATIENT
  Age: 43 Year
  Sex: Male

DRUGS (1)
  1. ULORIC [Suspect]
     Active Substance: FEBUXOSTAT
     Indication: GOUT
     Dosage: 10 MG, 1 IN 1 D, PER ORAL
     Route: 048
     Dates: end: 20110302

REACTIONS (1)
  - Activated partial thromboplastin time prolonged [None]
